FAERS Safety Report 10253840 (Version 1)
Quarter: 2014Q2

REPORT INFORMATION
  Report Type: Spontaneous
  Country: US (occurrence: US)
  Receive Date: 20140623
  Receipt Date: 20140623
  Transmission Date: 20141212
  Serious: No
  Sender: FDA-Public Use
  Company Number: US-ZOGENIX, INC.-2011ZX000572

PATIENT
  Sex: Female
  Weight: 79.45 kg

DRUGS (7)
  1. SUMAVEL DOSEPRO [Suspect]
     Indication: MIGRAINE
  2. MIRAPEX [Concomitant]
     Indication: RESTLESS LEGS SYNDROME
     Route: 048
  3. TREXIMET [Concomitant]
     Indication: MIGRAINE
     Route: 048
  4. MAXALT [Concomitant]
     Indication: MIGRAINE
     Route: 048
  5. LASIX [Concomitant]
     Indication: PRODUCT USED FOR UNKNOWN INDICATION
     Route: 048
  6. ZOLOFT [Concomitant]
     Indication: PAIN
     Route: 048
  7. HYDROCODONE [Concomitant]
     Indication: PAIN
     Route: 048

REACTIONS (6)
  - Injection site scab [Recovered/Resolved]
  - Injection site erythema [Recovered/Resolved]
  - Injection site bruising [Recovered/Resolved]
  - Injection site pain [Recovered/Resolved]
  - Palpitations [Recovered/Resolved]
  - Somnolence [Recovered/Resolved]
